FAERS Safety Report 9742846 (Version 2)
Quarter: 2014Q2

REPORT INFORMATION
  Report Type: Spontaneous
  Country: US (occurrence: US)
  Receive Date: 20131210
  Receipt Date: 20140415
  Transmission Date: 20141212
  Serious: No
  Sender: FDA-Public Use
  Company Number: US-PFIZER INC-2013349238

PATIENT
  Sex: Female

DRUGS (10)
  1. DILANTIN [Suspect]
     Dosage: UNK
  2. ESTRADIOL [Suspect]
     Dosage: UNK
  3. CARBAMAZEPINE [Suspect]
     Dosage: UNK
  4. LAMICTAL [Suspect]
     Dosage: UNK
  5. PHENOBARBITAL [Suspect]
     Dosage: UNK
  6. TEGRETOL [Suspect]
     Dosage: UNK
  7. TRILEPTAL [Suspect]
     Dosage: UNK
  8. ZONEGRAN [Suspect]
     Dosage: UNK
  9. ZONISAMIDE [Suspect]
     Dosage: UNK
  10. LEMIDAL [Suspect]
     Dosage: UNK

REACTIONS (1)
  - Drug hypersensitivity [Unknown]
